FAERS Safety Report 5893807-5 (Version None)
Quarter: 2008Q3

REPORT INFORMATION
  Report Type: 
  Country: None (occurrence: None)
  Receive Date: 20080923
  Receipt Date: 20080922
  Transmission Date: 20090109
  Serious: Yes (Other)
  Sender: FDA-Public Use
  Company Number: US-ASTRAZENECA-2008UW19763

PATIENT
  Age: 32 Year
  Sex: Male

DRUGS (2)
  1. CRESTOR [Suspect]
     Route: 048
     Dates: end: 20080701
  2. SEVERAL BLOOD PRESSURE PILLS [Concomitant]

REACTIONS (1)
  - RENAL DISORDER [None]
